FAERS Safety Report 25114926 (Version 2)
Quarter: 2025Q2

REPORT INFORMATION
  Report Type: Report from Study
  Country: JP (occurrence: JP)
  Receive Date: 20250324
  Receipt Date: 20250402
  Transmission Date: 20250717
  Serious: Yes (Other)
  Sender: PFIZER
  Company Number: JP-PFIZER INC-PV202400128712

PATIENT
  Age: 68 Year
  Sex: Male
  Weight: 63.3 kg

DRUGS (16)
  1. ELRANATAMAB [Suspect]
     Active Substance: ELRANATAMAB
     Indication: Plasma cell myeloma
     Route: 058
     Dates: start: 20240930, end: 20240930
  2. ELRANATAMAB [Suspect]
     Active Substance: ELRANATAMAB
     Route: 058
     Dates: start: 20241003, end: 20241003
  3. ELRANATAMAB [Suspect]
     Active Substance: ELRANATAMAB
     Route: 058
     Dates: start: 20241007, end: 20241007
  4. ALFACALCIDOL [Concomitant]
     Active Substance: ALFACALCIDOL
     Indication: Hypocalcaemia
     Dosage: 0.25, DAILY
  5. SYMPROIC [Concomitant]
     Active Substance: NALDEMEDINE TOSYLATE
     Indication: Constipation
     Dosage: 0.2 MG, DAILY
  6. AMITIZA [Concomitant]
     Active Substance: LUBIPROSTONE
     Indication: Constipation
     Dosage: 48, DAILY
  7. PREGABALIN [Concomitant]
     Active Substance: PREGABALIN
     Indication: Hypoaesthesia
     Dosage: 25 MG, DAILY
  8. LANSOPRAZOLE [Concomitant]
     Active Substance: LANSOPRAZOLE
     Indication: Gastrointestinal disorder
     Dosage: 15 MG, DAILY
  9. DROXIDOPA [Concomitant]
     Active Substance: DROXIDOPA
     Indication: Blood pressure decreased
     Dosage: 200 MG, DAILY
  10. CALCIUM SENNOSIDES [Concomitant]
     Active Substance: SENNOSIDES
     Indication: Constipation
     Dosage: 12 MG, DAILY
  11. CALONAL [Concomitant]
     Active Substance: ACETAMINOPHEN
     Indication: Pain in extremity
     Dosage: 900 MG, DAILY
  12. CRESEMBA [Concomitant]
     Active Substance: ISAVUCONAZONIUM SULFATE
     Indication: Antifungal treatment
     Dosage: 200 MG, DAILY
  13. AMOXICILLIN [Concomitant]
     Active Substance: AMOXICILLIN
     Indication: Spondylitis
     Dosage: 500 MG, DAILY
  14. ZYPREXA [Concomitant]
     Active Substance: OLANZAPINE
     Indication: Decreased appetite
     Dosage: 3 MG, DAILY
  15. AMEZINIUM METILSULFATE [Concomitant]
     Active Substance: AMEZINIUM METILSULFATE
     Indication: Dialysis hypotension
  16. SULFAMETHOXAZOLE\TRIMETHOPRIM [Concomitant]
     Active Substance: SULFAMETHOXAZOLE\TRIMETHOPRIM
     Indication: Antifungal prophylaxis

REACTIONS (2)
  - Cytokine release syndrome [Unknown]
  - Cytomegalovirus infection [Recovered/Resolved]

NARRATIVE: CASE EVENT DATE: 20241125
